FAERS Safety Report 11552521 (Version 1)
Quarter: 2015Q3

REPORT INFORMATION
  Report Type: Spontaneous
  Country: US (occurrence: US)
  Receive Date: 20150925
  Receipt Date: 20150925
  Transmission Date: 20151125
  Serious: Yes (Hospitalization)
  Sender: FDA-Public Use
  Company Number: US-JNJFOC-20150911659

PATIENT
  Sex: Female
  Weight: 58.97 kg

DRUGS (3)
  1. OMEPRAZOLE. [Concomitant]
     Active Substance: OMEPRAZOLE
     Indication: GASTRIC DISORDER
     Route: 065
  2. DURAGESIC [Suspect]
     Active Substance: FENTANYL
     Indication: FIBROMYALGIA
     Route: 062
  3. DURAGESIC [Suspect]
     Active Substance: FENTANYL
     Indication: FIBROMYALGIA
     Route: 062

REACTIONS (9)
  - Cholecystectomy [Recovered/Resolved]
  - Wrong technique in product usage process [Unknown]
  - Skin discolouration [Recovered/Resolved]
  - Arteriosclerosis [Recovered/Resolved]
  - Carpal tunnel syndrome [Recovered/Resolved]
  - Haemorrhoids [Recovered/Resolved]
  - Hysterectomy [Recovered/Resolved]
  - Arthritis [Not Recovered/Not Resolved]
  - Product adhesion issue [Unknown]

NARRATIVE: CASE EVENT DATE: 2011
